FAERS Safety Report 19560499 (Version 1)
Quarter: 2021Q3

REPORT INFORMATION
  Report Type: Spontaneous
  Country: US (occurrence: US)
  Receive Date: 20210716
  Receipt Date: 20210716
  Transmission Date: 20211014
  Serious: Yes (Death, Hospitalization)
  Sender: FDA-Public Use
  Company Number: None

PATIENT
  Age: 57 Year
  Sex: Female
  Weight: 54.8 kg

DRUGS (1)
  1. CISPLATIN. [Suspect]
     Active Substance: CISPLATIN
     Dates: end: 20201013

REACTIONS (21)
  - Biopsy pharynx abnormal [None]
  - Packed red blood cell transfusion [None]
  - Eschar [None]
  - Analgesic drug level increased [None]
  - Pulseless electrical activity [None]
  - Mouth ulceration [None]
  - Weaning failure [None]
  - Haemoptysis [None]
  - Necrosis [None]
  - Inflammation [None]
  - Transfusion [None]
  - Mouth haemorrhage [None]
  - Haemorrhage [None]
  - Endotracheal intubation complication [None]
  - Pharyngeal ulceration [None]
  - Cardio-respiratory arrest [None]
  - Excessive granulation tissue [None]
  - Syncope [None]
  - Computerised tomogram abnormal [None]
  - Hypovolaemia [None]
  - Thrombosis [None]

NARRATIVE: CASE EVENT DATE: 20210709
